FAERS Safety Report 19089115 (Version 1)
Quarter: 2021Q2

REPORT INFORMATION
  Report Type: Spontaneous
  Country: US (occurrence: US)
  Receive Date: 20210403
  Receipt Date: 20210403
  Transmission Date: 20210717
  Serious: Yes (Other)
  Sender: FDA-Public Use
  Company Number: US-SA-2021SA108459

PATIENT
  Age: 69 Year
  Sex: Male

DRUGS (1)
  1. ZANTAC [Suspect]
     Active Substance: RANITIDINE HYDROCHLORIDE
     Indication: DYSPEPSIA
     Dosage: 150 MG,QD
     Dates: start: 201407, end: 201810

REACTIONS (2)
  - Bladder cancer [Unknown]
  - Prostate cancer stage III [Not Recovered/Not Resolved]

NARRATIVE: CASE EVENT DATE: 20180209
